FAERS Safety Report 8097916-4 (Version None)
Quarter: 2012Q1

REPORT INFORMATION
  Report Type: 
  Country: None (occurrence: None)
  Receive Date: 20120128
  Receipt Date: 20110720
  Transmission Date: 20120608
  Serious: No
  Sender: FDA-Public Use
  Company Number: US-ABBOTT-11P-163-0840777-00

PATIENT
  Age: 47 Year
  Sex: Female

DRUGS (1)
  1. HUMIRA [Suspect]
     Indication: CROHN'S DISEASE
     Dates: start: 20110401

REACTIONS (6)
  - CANDIDIASIS [None]
  - ORAL DISORDER [None]
  - INJECTION SITE REACTION [None]
  - RASH PAPULAR [None]
  - PARAESTHESIA ORAL [None]
  - THERMAL BURN [None]
